FAERS Safety Report 7653994-5 (Version None)
Quarter: 2011Q3

REPORT INFORMATION
  Report Type: 
  Country: None (occurrence: None)
  Receive Date: 20110803
  Receipt Date: 20110721
  Transmission Date: 20111222
  Serious: Yes (Hospitalization)
  Sender: FDA-Public Use
  Company Number: PHHO2011US12194

PATIENT
  Sex: Male

DRUGS (21)
  1. TRAMADOL HCL [Concomitant]
  2. AFINITOR [Suspect]
     Indication: MULTIPLE MYELOMA
     Dosage: 5 MG, QD
     Route: 048
     Dates: start: 20110602, end: 20110704
  3. LOSARTAN POTASSIUM [Concomitant]
  4. ZANTAC [Concomitant]
  5. METFORMIN HCL [Concomitant]
  6. ACYCLOVIR [Concomitant]
  7. POTASSIUM [Concomitant]
  8. INSULIN [Concomitant]
  9. VITAMIN D [Concomitant]
  10. ASPIRIN [Concomitant]
  11. DEXAMETHASONE [Concomitant]
  12. LBH589 [Suspect]
     Indication: MULTIPLE MYELOMA
     Dosage: 40 MG, UNK
     Route: 048
     Dates: start: 20110602, end: 20110704
  13. ASPIRIN [Concomitant]
  14. COMPAZINE [Concomitant]
  15. GABAPENTIN [Concomitant]
  16. CALCIUM ACETATE [Concomitant]
  17. COMBIVENT [Concomitant]
  18. TERAZOSIN HCL [Concomitant]
  19. METOPROLOL TARTRATE [Concomitant]
  20. VICODIN [Concomitant]
  21. MULTI-VITAMIN [Concomitant]

REACTIONS (5)
  - MUCOSAL HAEMORRHAGE [None]
  - HYPERGLYCAEMIA [None]
  - LUNG INFILTRATION [None]
  - PANCYTOPENIA [None]
  - CONFUSIONAL STATE [None]
